FAERS Safety Report 9709256 (Version 2)
Quarter: 2013Q4

REPORT INFORMATION
  Report Type: Spontaneous
  Country: US (occurrence: US)
  Receive Date: 20131125
  Receipt Date: 20131227
  Transmission Date: 20140711
  Serious: Yes (Death, Hospitalization, Other)
  Sender: FDA-Public Use
  Company Number: US-GILEAD-2013-0088451

PATIENT
  Age: 59 Year
  Sex: Male

DRUGS (3)
  1. LETAIRIS [Suspect]
     Indication: PRODUCT USED FOR UNKNOWN INDICATION
     Dosage: 10 MG, QD
     Route: 048
     Dates: start: 20130626
  2. LETAIRIS [Suspect]
     Dates: start: 20130626
  3. REVATIO [Concomitant]

REACTIONS (3)
  - Pneumonia [Unknown]
  - Unevaluable event [Unknown]
  - Death [Fatal]
